FAERS Safety Report 7494698-1 (Version None)
Quarter: 2011Q2

REPORT INFORMATION
  Report Type: 
  Country: None (occurrence: None)
  Receive Date: 20110520
  Receipt Date: 20110513
  Transmission Date: 20111010
  Serious: Yes (Hospitalization, Other)
  Sender: FDA-Public Use
  Company Number: US-PFIZER INC-2009306865

PATIENT
  Age: 4 Year
  Sex: Male

DRUGS (12)
  1. NEURONTIN [Suspect]
     Dosage: UNK
     Dates: start: 20090101
  2. BACTRIM [Suspect]
     Dosage: UNK
     Dates: start: 20090101
  3. DAUNORUBICIN HCL [Suspect]
     Indication: ACUTE LYMPHOCYTIC LEUKAEMIA
     Dosage: 32 MG, UNK
     Route: 042
     Dates: start: 20090424, end: 20090501
  4. METHOTREXATE SODIUM [Suspect]
     Indication: ACUTE LYMPHOCYTIC LEUKAEMIA
     Dosage: 12 MG, 1 DAY
     Route: 048
     Dates: start: 20090424, end: 20090508
  5. CYTARABINE [Suspect]
     Indication: ACUTE LYMPHOCYTIC LEUKAEMIA
     Dosage: 24 MG, UNK
     Route: 051
     Dates: start: 20090424, end: 20090508
  6. SPRYCEL [Suspect]
     Dosage: 60 MG/M2, 1 DAY
     Route: 048
     Dates: start: 20090424, end: 20090507
  7. HYDROCORTISONE [Suspect]
     Indication: ACUTE LYMPHOCYTIC LEUKAEMIA
     Dosage: 12 MG, UNK
     Route: 051
     Dates: start: 20090424, end: 20090508
  8. METHYLPREDNISOLONE [Suspect]
     Indication: ACUTE LYMPHOCYTIC LEUKAEMIA
     Dosage: 436.8 MG, UNK
     Route: 042
     Dates: start: 20090424, end: 20090507
  9. ZOSYN [Suspect]
     Dosage: UNK
     Route: 042
     Dates: start: 20090101
  10. GRANISETRON HCL [Suspect]
     Dosage: UNK
     Dates: start: 20090101
  11. VINCRISTINE SULFATE [Suspect]
     Indication: ACUTE LYMPHOCYTIC LEUKAEMIA
     Dosage: 1.92 MG, UNK
     Route: 042
     Dates: start: 20090424, end: 20090501
  12. ONDANSERTRON HYDROCHLORIDE [Suspect]
     Dosage: UNK
     Dates: start: 20090101

REACTIONS (4)
  - ASPARTATE AMINOTRANSFERASE INCREASED [None]
  - LYMPHOPENIA [None]
  - GAMMA-GLUTAMYLTRANSFERASE INCREASED [None]
  - ALANINE AMINOTRANSFERASE INCREASED [None]
